FAERS Safety Report 17359151 (Version 1)
Quarter: 2020Q1

REPORT INFORMATION
  Report Type: Spontaneous
  Country: NL (occurrence: NL)
  Receive Date: 20200203
  Receipt Date: 20200203
  Transmission Date: 20200409
  Serious: Yes (Hospitalization)
  Sender: FDA-Public Use
  Company Number: NL-TEVA-2020-NL-1178056

PATIENT
  Sex: Female
  Weight: 79 kg

DRUGS (15)
  1. PARACETAMOL [Concomitant]
     Active Substance: ACETAMINOPHEN
  2. METOPROLOL. [Concomitant]
     Active Substance: METOPROLOL
  3. HYDROCHLOORTHIAZIDE [Concomitant]
     Active Substance: HYDROCHLOROTHIAZIDE
  4. PANZYTRAT (AMYLASE/LIPASE/PROTEASE) [Concomitant]
  5. LANOXIN (DIGOXINE) [Concomitant]
  6. THYRAX (LEVOTHYROXINE) [Concomitant]
  7. AZITROMYCINE [Concomitant]
     Active Substance: AZITHROMYCIN
  8. NOVORAPID (INSULINE ASPART) [Concomitant]
  9. LIDOCAINE. [Concomitant]
     Active Substance: LIDOCAINE
  10. ACENOCOUMAROL [Concomitant]
     Active Substance: ACENOCOUMAROL
  11. METOCLOPRAMIDE. [Concomitant]
     Active Substance: METOCLOPRAMIDE
  12. GEMCITABINE. [Suspect]
     Active Substance: GEMCITABINE
     Indication: PANCREATIC CARCINOMA
     Dosage: SOLUTION FOR INFUSION, 40 MG / ML (MILLIGRAMS PER MILLILITER), ONCE EVERY 4 WEEKS, 3X 1600MG , 1800
     Dates: start: 20190801, end: 20191121
  13. PANTOPRAZOL [Concomitant]
     Active Substance: PANTOPRAZOLE SODIUM
  14. CREON (AMYLASE/LIPASE/PROTEASE) [Concomitant]
  15. ABASAGLAR (INSULINE GLARGINE) [Concomitant]

REACTIONS (2)
  - Hypoalbuminaemia [Recovering/Resolving]
  - Generalised oedema [Recovering/Resolving]
